FAERS Safety Report 5602332-8 (Version None)
Quarter: 2008Q1

REPORT INFORMATION
  Report Type: 
  Country: None (occurrence: None)
  Receive Date: 20080125
  Receipt Date: 20080115
  Transmission Date: 20080703
  Serious: Yes (Death, Hospitalization)
  Sender: FDA-Public Use
  Company Number: GB-AMGEN-UK261037

PATIENT
  Sex: Female
  Weight: 78.1 kg

DRUGS (3)
  1. PANITUMUMAB [Suspect]
     Indication: COLORECTAL CANCER
     Route: 042
     Dates: start: 20070614, end: 20080104
  2. IRINOTECAN [Suspect]
     Route: 042
     Dates: start: 20070614, end: 20080104
  3. ATENOLOL [Concomitant]
     Route: 065

REACTIONS (1)
  - DISEASE PROGRESSION [None]
